FAERS Safety Report 18533297 (Version 1)
Quarter: 2020Q4

REPORT INFORMATION
  Report Type: Spontaneous
  Country: US (occurrence: US)
  Receive Date: 20201123
  Receipt Date: 20201123
  Transmission Date: 20210114
  Serious: Yes (Other)
  Sender: FDA-Public Use
  Company Number: US-MYLANLABS-2020M1095979

PATIENT
  Sex: Female
  Weight: 36 kg

DRUGS (1)
  1. XULANE [Suspect]
     Active Substance: ETHINYL ESTRADIOL\NORELGESTROMIN
     Indication: CONTRACEPTION
     Dosage: CHANGE ONCE PER WEEK, THEN 1 WEEK PATCH-FREE
     Route: 062
     Dates: start: 20200927, end: 20201024

REACTIONS (4)
  - Pregnancy with contraceptive patch [Recovered/Resolved]
  - Biochemical pregnancy [Recovered/Resolved]
  - Drug ineffective [Unknown]
  - Abortion spontaneous [Recovered/Resolved]

NARRATIVE: CASE EVENT DATE: 2020
